FAERS Safety Report 9831721 (Version 1)
Quarter: 2014Q1

REPORT INFORMATION
  Report Type: Spontaneous
  Country: FR (occurrence: FR)
  Receive Date: 20140121
  Receipt Date: 20140121
  Transmission Date: 20141002
  Serious: Yes (Death, Other)
  Sender: FDA-Public Use
  Company Number: FR-JNJFOC-20140108040

PATIENT
  Age: 62 Year
  Sex: Female

DRUGS (6)
  1. DOXORUBICIN HYDROCHLORIDE [Suspect]
     Indication: PLASMA CELL LEUKAEMIA
     Dosage: CYCLIC ON DAY 4
     Route: 042
     Dates: start: 20120702, end: 20120702
  2. VELCADE [Suspect]
     Indication: PLASMA CELL LEUKAEMIA
     Route: 042
     Dates: start: 20120629, end: 20120706
  3. DEXAMETHASONE [Suspect]
     Indication: PLASMA CELL LEUKAEMIA
     Dosage: CYCLIC ON DAYS 1, 4, 8 AND 11
     Route: 048
     Dates: start: 20120629, end: 20120706
  4. CYCLOPHOSPHAMIDE [Suspect]
     Indication: PLASMA CELL LEUKAEMIA
     Dosage: CYCLIC ON DAYS 1 AND 8 IN 21 DAY CYCLES FOR 4 CYCLES.
     Route: 065
  5. LENALIDOMIDE [Suspect]
     Indication: PLASMA CELL LEUKAEMIA
     Dosage: DAILY ON DAYS 1-15 ON MONTHS 1, 4, 7 AND 10. ON DAYS 21 AND 28 ON THE OTHER MONTHS FOR 1 YEAR.
     Route: 065
  6. MELPHALAN [Suspect]
     Indication: PLASMA CELL LEUKAEMIA
     Route: 065

REACTIONS (2)
  - Sepsis [Fatal]
  - Off label use [Unknown]
